FAERS Safety Report 16157871 (Version 1)
Quarter: 2019Q2

REPORT INFORMATION
  Report Type: Spontaneous
  Country: ES (occurrence: ES)
  Receive Date: 20190404
  Receipt Date: 20190404
  Transmission Date: 20190711
  Serious: Yes (Life-Threatening)
  Sender: FDA-Public Use
  Company Number: ES-AMGEN-ESPSP2019049724

PATIENT
  Age: 25 Year
  Sex: Male
  Weight: 63.5 kg

DRUGS (33)
  1. ACFOL [Concomitant]
     Active Substance: FOLIC ACID
     Dosage: 5 MILLIGRAM
     Route: 048
  2. DORMICUM [MIDAZOLAM] [Concomitant]
     Active Substance: MIDAZOLAM HYDROCHLORIDE
     Route: 048
  3. MAGNESIUM LACTATE [Concomitant]
     Active Substance: MAGNESIUM LACTATE
     Dosage: 48.62 MILLIGRAM
  4. POLARAMINE [Concomitant]
     Active Substance: DEXCHLORPHENIRAMINE MALEATE
     Dosage: UNK
     Route: 042
  5. VANCOMYCIN [Concomitant]
     Active Substance: VANCOMYCIN
     Dosage: UNK
     Route: 042
  6. CAFEINA [Concomitant]
     Dosage: UNK (14A)
  7. METAMIZOL [Concomitant]
     Active Substance: METAMIZOLE SODIUM
     Dosage: UNK (111A)
     Route: 042
  8. OMEPRAZOLE. [Concomitant]
     Active Substance: OMEPRAZOLE
     Dosage: 20 MILLIGRAM
     Route: 048
  9. CIPROFLOXACIN. [Concomitant]
     Active Substance: CIPROFLOXACIN
     Dosage: 500 MILLIGRAM
     Route: 048
  10. ONDANSETRON [Concomitant]
     Active Substance: ONDANSETRON
     Dosage: 8 MILLIGRAM
     Route: 048
  11. PARACETAMOL [Concomitant]
     Active Substance: ACETAMINOPHEN
     Dosage: 1 GRAM (100 ML SOL)
     Route: 042
  12. AMIKACIN. [Concomitant]
     Active Substance: AMIKACIN
     Dosage: UNK
     Route: 042
  13. ADVENTAN [Concomitant]
     Dosage: 0.1 PERCENT
     Route: 061
  14. URSOBILANE [Concomitant]
     Dosage: 300 MILLIGRAM
     Route: 048
  15. OMEPRAZOLE. [Concomitant]
     Active Substance: OMEPRAZOLE
     Dosage: UNK
     Route: 042
  16. MAGNESIUM SULPHATE [MAGNESIUM SULFATE] [Concomitant]
     Dosage: UNK
     Route: 042
  17. VISCOFRESH [Concomitant]
     Dosage: 0.5 PERCENT
     Route: 047
  18. ATARAX [ALPRAZOLAM] [Concomitant]
     Active Substance: ALPRAZOLAM
     Dosage: 25 MILLIGRAM
     Route: 048
  19. ACICLOVIR [Concomitant]
     Active Substance: ACYCLOVIR
     Dosage: 800 MILLIGRAM
     Route: 042
  20. ZYLORIC [Concomitant]
     Active Substance: ALLOPURINOL
     Dosage: 300 MILLIGRAM
     Route: 048
  21. ORFIDAL [Concomitant]
     Active Substance: LORAZEPAM
     Dosage: 1 MILLIGRAM
     Route: 048
  22. CLARITYNE [Concomitant]
     Active Substance: LORATADINE
     Dosage: 10 MILLIGRAM
     Route: 048
  23. MEROPENEM. [Concomitant]
     Active Substance: MEROPENEM
     Dosage: UNK  (7155A)
     Route: 042
  24. CEFEPIMA [CEFEPIME] [Concomitant]
     Dosage: UNK
     Route: 042
  25. PIPERACILINA + TAZOBACTAM [Concomitant]
     Active Substance: PIPERACILLIN SODIUM\TAZOBACTAM SODIUM
     Dosage: UNK
     Route: 042
  26. DEXAMETHASONE. [Concomitant]
     Active Substance: DEXAMETHASONE
     Dosage: UNK
     Route: 042
  27. BLINCYTO [Suspect]
     Active Substance: BLINATUMOMAB
     Indication: ACUTE LYMPHOCYTIC LEUKAEMIA
     Dosage: 28 MICROGRAM, QD
     Route: 051
     Dates: start: 20190222, end: 20190313
  28. POSACONAZOL [Concomitant]
     Active Substance: POSACONAZOLE
     Dosage: 100 MILLIGRAM
     Route: 048
  29. FUROSEMIDE. [Concomitant]
     Active Substance: FUROSEMIDE
     Dosage: 20 MILLIGRAM (2ML AMP)
     Route: 042
  30. CALCIUM GLUCONATE. [Concomitant]
     Active Substance: CALCIUM GLUCONATE
     Dosage: UNK
     Route: 042
  31. SANDIMMUN NEORAL [Concomitant]
     Active Substance: CYCLOSPORINE
     Dosage: UNK
     Route: 048
  32. SEPTRIN [Concomitant]
     Active Substance: SULFAMETHOXAZOLE\TRIMETHOPRIM
     Dosage: 160 MG/800 MG
     Route: 048
  33. URBASON [METHYLPREDNISOLONE ACETATE] [Concomitant]
     Dosage: 20 MILLIGRAM
     Route: 042

REACTIONS (2)
  - Subdural haematoma [Unknown]
  - Headache [Unknown]

NARRATIVE: CASE EVENT DATE: 201903
